FAERS Safety Report 8022189-8 (Version None)
Quarter: 2011Q4

REPORT INFORMATION
  Report Type: 
  Country: None (occurrence: None)
  Receive Date: 20111229
  Receipt Date: 20111221
  Transmission Date: 20120403
  Serious: Yes (Life-Threatening, Hospitalization, Disabling, Other)
  Sender: FDA-Public Use
  Company Number: 2009JP000992

PATIENT
  Age: 46 Year
  Sex: Male
  Weight: 52 kg

DRUGS (18)
  1. METOPROLOL TARTRATE [Concomitant]
  2. LANSOPRAZOLE [Concomitant]
  3. PROGRAF [Suspect]
     Indication: IMMUNOSUPPRESSANT DRUG THERAPY
     Dosage: 3 MG, BID, ORAL
     Route: 048
     Dates: start: 20060718
  4. ANTIFUNGALS [Concomitant]
  5. ZANTAC [Concomitant]
  6. DIFLUCAN [Concomitant]
  7. BASILIXIMAB (BASILIXIMAB) [Concomitant]
  8. AMPHOTERICIN B [Concomitant]
  9. PREDNISOLONE [Suspect]
     Indication: IMMUNOSUPPRESSANT DRUG THERAPY
     Dosage: 5;20  MG, UNKNOWN/D, ORAL
     Route: 048
     Dates: start: 20060715
  10. GANCICLOVIR [Concomitant]
  11. FLUCONAZOLE [Concomitant]
  12. ALLOPURINOL [Concomitant]
  13. AMLODIPINE BESYLATE [Concomitant]
  14. MICARDIS [Concomitant]
  15. CELLCEPT [Suspect]
     Indication: IMMUNOSUPPRESSANT DRUG THERAPY
     Dosage: 500;250 MG, UNKNOWN D, ORAL
     Route: 048
     Dates: start: 20060712
  16. FERROMIA (FERROUS SODIUM CITRATE) [Concomitant]
  17. URIEF (SILODOSIN) [Concomitant]
  18. AVAPRO [Concomitant]

REACTIONS (17)
  - ANAEMIA [None]
  - NOCARDIOSIS [None]
  - PROCEDURAL HYPERTENSION [None]
  - MENINGITIS CRYPTOCOCCAL [None]
  - CYTOMEGALOVIRUS CHORIORETINITIS [None]
  - ASYMPTOMATIC BACTERIURIA [None]
  - PYREXIA [None]
  - OROPHARYNGEAL PAIN [None]
  - URINARY TRACT INFECTION [None]
  - UPPER RESPIRATORY TRACT INFLAMMATION [None]
  - INFECTION IN AN IMMUNOCOMPROMISED HOST [None]
  - SERRATIA TEST POSITIVE [None]
  - HYPERURICAEMIA [None]
  - CYTOMEGALOVIRUS INFECTION [None]
  - ORAL CANDIDIASIS [None]
  - VIRAL UPPER RESPIRATORY TRACT INFECTION [None]
  - NEUROGENIC BLADDER [None]
